FAERS Safety Report 9160047 (Version 2)
Quarter: 2013Q1

REPORT INFORMATION
  Report Type: Spontaneous
  Country: US (occurrence: US)
  Receive Date: 20130313
  Receipt Date: 20130326
  Transmission Date: 20140127
  Serious: Yes (Other)
  Sender: FDA-Public Use
  Company Number: PHEH2013US003956

PATIENT
  Age: 48 Year
  Sex: Female
  Weight: 59.86 kg

DRUGS (2)
  1. GILENYA [Suspect]
     Indication: RELAPSING-REMITTING MULTIPLE SCLEROSIS
     Dosage: 0.5 MG, QD
     Route: 048
     Dates: start: 20130214, end: 20130214
  2. NORVASC [Concomitant]
     Indication: HYPERTENSION
     Dosage: 5 MG, QD
     Route: 048

REACTIONS (11)
  - Central nervous system lesion [Unknown]
  - Pollakiuria [Unknown]
  - Hyperhidrosis [Unknown]
  - Speech disorder [Unknown]
  - Blood pressure decreased [Recovering/Resolving]
  - Vertigo [Unknown]
  - Rash [Unknown]
  - Anxiety [Unknown]
  - Heart rate decreased [Recovering/Resolving]
  - Dizziness [Unknown]
  - Paraesthesia [Unknown]
